FAERS Safety Report 8098529-0 (Version None)
Quarter: 2012Q1

REPORT INFORMATION
  Report Type: 
  Country: None (occurrence: None)
  Receive Date: 20120129
  Receipt Date: 20110906
  Transmission Date: 20120608
  Serious: No
  Sender: FDA-Public Use
  Company Number: US-ABBOTT-11P-163-0851824-00

PATIENT
  Age: 16 Year
  Sex: Female

DRUGS (6)
  1. HUMIRA [Suspect]
  2. HUMIRA [Suspect]
     Indication: JUVENILE ARTHRITIS
     Dates: start: 20110808
  3. SPIRONOLACTONE [Concomitant]
     Indication: PRODUCT USED FOR UNKNOWN INDICATION
  4. SULFASALAZINE [Concomitant]
     Indication: JUVENILE ARTHRITIS
  5. METFORMIN HCL [Concomitant]
     Indication: POLYCYSTIC OVARIES
  6. ETODOLAC [Concomitant]
     Indication: JUVENILE ARTHRITIS

REACTIONS (4)
  - OROPHARYNGEAL PAIN [None]
  - COUGH [None]
  - NASAL CONGESTION [None]
  - NASOPHARYNGITIS [None]
